FAERS Safety Report 24449064 (Version 2)
Quarter: 2024Q4

REPORT INFORMATION
  Report Type: Spontaneous
  Country: US (occurrence: US)
  Receive Date: 20241017
  Receipt Date: 20241101
  Transmission Date: 20250115
  Serious: Yes (Life-Threatening, Hospitalization)
  Sender: TEVA
  Company Number: US-TEVA-VS-3253284

PATIENT
  Age: 66 Year
  Sex: Female

DRUGS (3)
  1. METHYLPREDNISOLONE [Suspect]
     Active Substance: METHYLPREDNISOLONE
     Indication: Myocarditis
     Route: 042
  2. NIVOLUMAB [Suspect]
     Active Substance: NIVOLUMAB
     Indication: Metastatic malignant melanoma
     Route: 065
  3. IPILIMUMAB [Suspect]
     Active Substance: IPILIMUMAB
     Indication: Metastatic malignant melanoma
     Route: 065

REACTIONS (8)
  - Immune-mediated myasthenia gravis [Unknown]
  - Cardiogenic shock [Recovering/Resolving]
  - Respiratory failure [Unknown]
  - Respiratory distress [Unknown]
  - Drug ineffective [Unknown]
  - Hypoxia [Unknown]
  - Myositis [Unknown]
  - Myocarditis [Unknown]
